FAERS Safety Report 8169552-2 (Version None)
Quarter: 2012Q1

REPORT INFORMATION
  Report Type: 
  Country: None (occurrence: None)
  Receive Date: 20120222
  Receipt Date: 20120213
  Transmission Date: 20120608
  Serious: Yes (Other)
  Sender: FDA-Public Use
  Company Number: TPA2011A05336

PATIENT
  Age: 72 Year
  Sex: Male
  Weight: 94.8018 kg

DRUGS (13)
  1. ACTOS [Suspect]
     Indication: TYPE 2 DIABETES MELLITUS
     Dosage: 30 MG, 1 IN 1 D ; 45 MG, 1/2 TAB QD ; 45 MG, 1 IN 1 D
     Dates: start: 20031103, end: 20040105
  2. ACTOS [Suspect]
     Indication: TYPE 2 DIABETES MELLITUS
     Dosage: 30 MG, 1 IN 1 D ; 45 MG, 1/2 TAB QD ; 45 MG, 1 IN 1 D
     Dates: start: 20040105, end: 20070813
  3. ACTOS [Suspect]
     Indication: TYPE 2 DIABETES MELLITUS
     Dosage: 30 MG, 1 IN 1 D ; 45 MG, 1/2 TAB QD ; 45 MG, 1 IN 1 D
     Dates: start: 20070813, end: 20110801
  4. METFORMIN HCL [Concomitant]
  5. LEVOTHYROXINE SODIUM [Concomitant]
  6. BENAZEPRIL HYDROCHLORIDE [Concomitant]
  7. CIPROFLOXACIN [Concomitant]
  8. METOPROLOL TARTRATE [Concomitant]
  9. AMLODIPINE [Concomitant]
  10. ASPIRIN [Concomitant]
  11. INSULIN ASP PRT-INSULIN ASPART (INSULIN ASPART, INSULIN ASPART PROTAMI [Concomitant]
  12. CYANOCOBALAMIN (VITAMIN B-12) (CYANOCOBALAMIN) [Concomitant]
  13. CRESTOR [Concomitant]

REACTIONS (4)
  - BLADDER CANCER [None]
  - HAEMATURIA [None]
  - POLLAKIURIA [None]
  - MICTURITION URGENCY [None]
